FAERS Safety Report 4892492-9 (Version None)
Quarter: 2006Q1

REPORT INFORMATION
  Report Type: 
  Country: None (occurrence: None)
  Receive Date: 20060124
  Receipt Date: 20060116
  Transmission Date: 20060701
  Serious: Yes (Other)
  Sender: FDA-Public Use
  Company Number: GXKR2006GB00491

PATIENT
  Age: 77 Year
  Sex: Male

DRUGS (3)
  1. INDOMETHACIN [Suspect]
     Indication: SPINAL OSTEOARTHRITIS
     Dosage: 3 DF/DAY, ORAL
     Route: 048
     Dates: start: 20051103, end: 20051108
  2. ATORVASTATIN CALCIUM [Concomitant]
  3. OMEPRAZOLE [Concomitant]

REACTIONS (7)
  - BLOOD SODIUM DECREASED [None]
  - C-REACTIVE PROTEIN INCREASED [None]
  - DIARRHOEA [None]
  - HAEMOGLOBIN ABNORMAL [None]
  - HALLUCINATION, VISUAL [None]
  - HEADACHE [None]
  - POLLAKIURIA [None]
